FAERS Safety Report 7275297-3 (Version None)
Quarter: 2011Q1

REPORT INFORMATION
  Report Type: 
  Country: None (occurrence: None)
  Receive Date: 20110204
  Receipt Date: 20110131
  Transmission Date: 20110831
  Serious: Yes (Death)
  Sender: FDA-Public Use
  Company Number: PHHY2011US04367

PATIENT
  Sex: Female

DRUGS (2)
  1. SANDOSTATIN LAR [Suspect]
     Indication: DIARRHOEA
     Dosage: 30 MG, QMO
  2. SANDOSTATIN LAR [Suspect]
     Dosage: 1 UNK, QMO
     Dates: start: 20100101, end: 20100901

REACTIONS (1)
  - PANCREATIC CARCINOMA [None]
